FAERS Safety Report 5684660-3 (Version None)
Quarter: 2008Q1

REPORT INFORMATION
  Report Type: 
  Country: None (occurrence: None)
  Receive Date: 20080328
  Receipt Date: 20070507
  Transmission Date: 20080703
  Serious: No
  Sender: FDA-Public Use
  Company Number: US-BRISTOL-MYERS SQUIBB COMPANY-13771258

PATIENT
  Age: 62 Year
  Sex: Male
  Weight: 77 kg

DRUGS (2)
  1. ERBITUX [Suspect]
     Dates: start: 20070507, end: 20070507
  2. ERBITUX [Suspect]
     Dates: start: 20070507, end: 20070507

REACTIONS (1)
  - EXTRAVASATION [None]
